FAERS Safety Report 5157063-8 (Version None)
Quarter: 2006Q4

REPORT INFORMATION
  Report Type: 
  Country: None (occurrence: None)
  Receive Date: 20061127
  Receipt Date: 20061115
  Transmission Date: 20070319
  Serious: Yes (Other)
  Sender: FDA-Public Use
  Company Number: PHBS2006BE17824

PATIENT
  Age: 54 Year
  Sex: Male

DRUGS (2)
  1. AREDIA [Suspect]
     Route: 065
     Dates: start: 19981120, end: 20021011
  2. ZOMETA [Suspect]
     Route: 065
     Dates: start: 20021115

REACTIONS (1)
  - OSTEONECROSIS [None]
